FAERS Safety Report 8935069 (Version 1)
Quarter: 2012Q4

REPORT INFORMATION
  Report Type: 
  Country: DE (occurrence: DE)
  Receive Date: 20121129
  Receipt Date: 20121129
  Transmission Date: 20130627
  Serious: Yes (Other)
  Sender: FDA-Public Use
  Company Number: DE-PFIZER INC-2012299983

PATIENT
  Age: 58 Year
  Sex: Male

DRUGS (2)
  1. TREVILOR [Suspect]
     Dosage: 75 mg, UNK
  2. TREVILOR [Suspect]
     Dosage: 150 mg, UNK

REACTIONS (2)
  - Homicide [Unknown]
  - Amnesia [Unknown]
